FAERS Safety Report 22174664 (Version 2)
Quarter: 2023Q2

REPORT INFORMATION
  Report Type: Spontaneous
  Country: US (occurrence: US)
  Receive Date: 20230405
  Receipt Date: 20230426
  Transmission Date: 20230722
  Serious: Yes (Hospitalization)
  Sender: FDA-Public Use
  Company Number: US-ORPHANEU-2023001979

PATIENT

DRUGS (9)
  1. CARBAGLU [Suspect]
     Active Substance: CARGLUMIC ACID
     Indication: Methylmalonic acidaemia
     Dosage: 900 MILLIGRAM, BID
     Route: 048
     Dates: start: 20201208
  2. CARBAGLU [Suspect]
     Active Substance: CARGLUMIC ACID
     Dosage: 400 MILLIGRAM, BID
     Route: 048
     Dates: end: 2023
  3. CARBAGLU [Suspect]
     Active Substance: CARGLUMIC ACID
     Dosage: 1000 MILLIGRAM, BID (150 MG/KG)
     Route: 048
     Dates: start: 2023
  4. VITAMIN B12 [Concomitant]
     Active Substance: CYANOCOBALAMIN
     Indication: Product used for unknown indication
     Dosage: 2500 MICROGRAM
     Route: 048
     Dates: start: 20220617
  5. IRON [Concomitant]
     Active Substance: IRON
     Indication: Product used for unknown indication
     Dosage: 159 (45) MILLIGRAM
     Route: 048
     Dates: start: 20220617
  6. POLY-VI-SOL [VITAMINS NOS] [Concomitant]
     Indication: Product used for unknown indication
     Dosage: UNK
     Dates: start: 20201124
  7. KEPPRA [Concomitant]
     Active Substance: LEVETIRACETAM
     Indication: Product used for unknown indication
     Dosage: UNK
     Dates: start: 20201124
  8. LEVOCARNITINE [Concomitant]
     Active Substance: LEVOCARNITINE
     Indication: Product used for unknown indication
     Dosage: UNK
     Dates: start: 20201124
  9. VITAMIN B2 [Concomitant]
     Active Substance: RIBOFLAVIN
     Indication: Product used for unknown indication
     Dosage: 100 MILLIGRAM
     Route: 048
     Dates: start: 20220617

REACTIONS (1)
  - Illness [Unknown]

NARRATIVE: CASE EVENT DATE: 20230301
